FAERS Safety Report 23637120 (Version 1)
Quarter: 2024Q1

REPORT INFORMATION
  Report Type: Spontaneous
  Country: US (occurrence: US)
  Receive Date: 20240315
  Receipt Date: 20240315
  Transmission Date: 20240409
  Serious: Yes (Hospitalization, Other)
  Sender: FDA-Public Use
  Company Number: US-Blueprint Medicines Corporation-2710

PATIENT
  Sex: Male

DRUGS (1)
  1. AYVAKIT [Suspect]
     Active Substance: AVAPRITINIB
     Indication: Gastrointestinal stromal tumour
     Route: 065
     Dates: start: 20230121

REACTIONS (6)
  - Dizziness [Unknown]
  - Loss of consciousness [Unknown]
  - Dizziness postural [Unknown]
  - Presyncope [Unknown]
  - Tremor [Unknown]
  - Asthenia [Unknown]
